FAERS Safety Report 9319747 (Version 4)
Quarter: 2014Q1

REPORT INFORMATION
  Report Type: Report from Study
  Country: GB (occurrence: GB)
  Receive Date: 20130530
  Receipt Date: 20140212
  Transmission Date: 20141002
  Serious: Yes (Congenital Anomaly, Other)
  Sender: FDA-Public Use
  Company Number: GB-VIIV HEALTHCARE LIMITED-A1024425A

PATIENT
  Sex: Male
  Weight: 4.1 kg

DRUGS (4)
  1. SELZENTRY [Suspect]
     Indication: ANTIVIRAL TREATMENT
     Dosage: 150MG TWICE PER DAY
     Route: 064
  2. PREZISTA [Suspect]
     Indication: ANTIVIRAL TREATMENT
     Dosage: 800MG PER DAY
     Route: 064
  3. ISENTRESS [Suspect]
     Indication: ANTIVIRAL TREATMENT
     Dosage: 400MG TWICE PER DAY
     Route: 064
  4. NORVIR [Suspect]
     Indication: ANTIVIRAL TREATMENT
     Dosage: 100MG PER DAY
     Route: 064

REACTIONS (6)
  - Congenital cystic kidney disease [Unknown]
  - Congenital vesicoureteric reflux [Unknown]
  - Congenital bladder anomaly [Unknown]
  - Foetal exposure during pregnancy [Unknown]
  - Congenital hydronephrosis [Unknown]
  - Congenital ureteric anomaly [Unknown]
